FAERS Safety Report 13840541 (Version 2)
Quarter: 2017Q4

REPORT INFORMATION
  Report Type: Spontaneous
  Country: DE (occurrence: DE)
  Receive Date: 20170807
  Receipt Date: 20171002
  Transmission Date: 20180320
  Serious: Yes (Other)
  Sender: FDA-Public Use
  Company Number: DE-TEVA-792865GER

PATIENT
  Age: 77 Year
  Sex: Female
  Weight: 59 kg

DRUGS (3)
  1. CARBOPLATIN-ACTAVIS 10 MG/ML CONCENTRATE FOR SOLUTION FOR INFUSION [Suspect]
     Active Substance: CARBOPLATIN
     Route: 042
     Dates: start: 20170206, end: 2017
  2. CARBOPLATIN-ACTAVIS 10 MG/ML CONCENTRATE FOR SOLUTION FOR INFUSION [Suspect]
     Active Substance: CARBOPLATIN
     Indication: ADENOCARCINOMA
     Dosage: 130 MILLIGRAM DAILY;
     Route: 042
     Dates: start: 20170607, end: 20170607
  3. TAXOMEDAC [Concomitant]
     Active Substance: PACLITAXEL
     Indication: ADENOCARCINOMA
     Dosage: INFUSION DURATION 120 MINUTES
     Route: 042

REACTIONS (1)
  - Circulatory collapse [Recovered/Resolved]

NARRATIVE: CASE EVENT DATE: 20170607
